FAERS Safety Report 5101270-7 (Version None)
Quarter: 2006Q3

REPORT INFORMATION
  Report Type: 
  Country: None (occurrence: None)
  Receive Date: 20060911
  Receipt Date: 20060719
  Transmission Date: 20061208
  Serious: Yes (Disabling, Other)
  Sender: FDA-Public Use
  Company Number: US-AVENTIS-200616077US

PATIENT
  Sex: Female
  Weight: 2.78 kg

DRUGS (1)
  1. LOVENOX [Suspect]
     Dosage: DOSE: UNK
     Dates: start: 20030201, end: 20030724

REACTIONS (31)
  - BLINDNESS [None]
  - BLOOD CREATININE INCREASED [None]
  - BLOOD FIBRINOGEN INCREASED [None]
  - BLOOD GASES ABNORMAL [None]
  - BLOOD POTASSIUM INCREASED [None]
  - BLOOD UREA INCREASED [None]
  - CEREBRAL PALSY [None]
  - CONVULSION [None]
  - DEAFNESS BILATERAL [None]
  - DRUG EXPOSURE DURING PREGNANCY [None]
  - EYE HAEMORRHAGE [None]
  - FOETAL HEART RATE DECELERATION [None]
  - HAEMATOCRIT INCREASED [None]
  - HAEMOGLOBIN INCREASED [None]
  - HYPOXIA [None]
  - INTRAVENTRICULAR HAEMORRHAGE [None]
  - IRRITABILITY [None]
  - LETHARGY [None]
  - MECONIUM STAIN [None]
  - MENTAL RETARDATION SEVERITY UNSPECIFIED [None]
  - MUSCLE TWITCHING [None]
  - NASAL FLARING [None]
  - NERVOUS SYSTEM DISORDER [None]
  - NEUROPATHY [None]
  - PLATELET COUNT DECREASED [None]
  - PROTHROMBIN TIME ABNORMAL [None]
  - SEPSIS [None]
  - SUBARACHNOID HAEMORRHAGE [None]
  - SUBDURAL HAEMATOMA [None]
  - THROMBOCYTOPENIA [None]
  - WHITE BLOOD CELL COUNT ABNORMAL [None]
